FAERS Safety Report 10502145 (Version 1)
Quarter: 2014Q4

REPORT INFORMATION
  Report Type: Spontaneous
  Country: US (occurrence: None)
  Receive Date: 20141006
  Receipt Date: 20141006
  Transmission Date: 20150528
  Serious: Yes (Other)
  Sender: FDA-Public Use
  Company Number: None

PATIENT
  Age: 15 Year
  Sex: Female

DRUGS (1)
  1. ENBREL [Suspect]
     Active Substance: ETANERCEPT
     Indication: RHEUMATOID ARTHRITIS
     Route: 058
     Dates: start: 20140901

REACTIONS (5)
  - Sinusitis [None]
  - Migraine [None]
  - Nausea [None]
  - Malaise [None]
  - Hypokinesia [None]

NARRATIVE: CASE EVENT DATE: 20140901
